FAERS Safety Report 21623714 (Version 1)
Quarter: 2022Q4

REPORT INFORMATION
  Report Type: Spontaneous
  Country: US (occurrence: None)
  Receive Date: 20221119
  Receipt Date: 20221119
  Transmission Date: 20230113
  Serious: No
  Sender: FDA-Public Use
  Company Number: None

PATIENT
  Age: 75 Year
  Sex: Male
  Weight: 93.98 kg

DRUGS (16)
  1. ABIRATERONE [Suspect]
     Active Substance: ABIRATERONE
     Indication: Prostate cancer
     Dosage: FREQUENCY : DAILY;?
     Route: 048
  2. ASPIRIN [Concomitant]
     Active Substance: ASPIRIN
  3. VITAMIN B COMPLEX [Concomitant]
     Active Substance: CYANOCOBALAMIN\DEXPANTHENOL\NIACINAMIDE\PYRIDOXINE HYDROCHLORIDE\RIBOFLAVIN 5^-PHOSPHATE SODIUM\THIA
  4. Cal-Mag [Concomitant]
  5. CALCIUM\CHOLECALCIFEROL [Concomitant]
     Active Substance: CALCIUM\CHOLECALCIFEROL
  6. CARVEDILOL [Concomitant]
  7. FLUTICASONE [Concomitant]
  8. LUPRON [Concomitant]
     Active Substance: LEUPROLIDE ACETATE
  9. MEFORMIN [Concomitant]
  10. OMEPRAZOLE [Concomitant]
     Active Substance: OMEPRAZOLE
  11. PREDNISONE [Concomitant]
     Active Substance: PREDNISONE
  12. ROSUVASTATIN [Concomitant]
  13. TAMSULOSIN [Concomitant]
     Active Substance: TAMSULOSIN
  14. VITAMIN C [Concomitant]
     Active Substance: ASCORBIC ACID
  15. VITAMIN E [Concomitant]
     Active Substance: .ALPHA.-TOCOPHEROL
  16. ZOLEDRONIC [Concomitant]
     Active Substance: ZOLEDRONIC ACID

REACTIONS (2)
  - Disease progression [None]
  - Therapy change [None]
